FAERS Safety Report 26133735 (Version 1)
Quarter: 2025Q4

REPORT INFORMATION
  Report Type: Spontaneous
  Country: CN (occurrence: CN)
  Receive Date: 20251209
  Receipt Date: 20251209
  Transmission Date: 20260118
  Serious: Yes (Other)
  Sender: ROCHE
  Company Number: JP-ROCHE-10000439788

PATIENT
  Age: 65 Year
  Sex: Female
  Weight: 44 kg

DRUGS (8)
  1. CAPECITABINE [Suspect]
     Active Substance: CAPECITABINE
     Indication: Colon cancer
     Dosage: IN THE EVENING
  2. CAPECITABINE [Suspect]
     Active Substance: CAPECITABINE
     Dosage: IN THE MORNING
  3. BEVACIZUMAB [Suspect]
     Active Substance: BEVACIZUMAB
     Indication: Metastases to liver
  4. BEVACIZUMAB [Suspect]
     Active Substance: BEVACIZUMAB
     Route: 042
  5. OXALIPLATIN [Suspect]
     Active Substance: OXALIPLATIN
     Indication: Colon cancer
  6. IRINOTECAN [Concomitant]
     Active Substance: IRINOTECAN
  7. LEUCOVORIN [Concomitant]
     Active Substance: LEUCOVORIN\LEUCOVORIN CALCIUM
  8. FLUOROURACIL [Concomitant]
     Active Substance: FLUOROURACIL

REACTIONS (4)
  - Chest discomfort [Unknown]
  - Interstitial lung disease [Unknown]
  - Wheezing [Unknown]
  - Hypersensitivity [Unknown]
